FAERS Safety Report 5145264-4 (Version None)
Quarter: 2006Q4

REPORT INFORMATION
  Report Type: 
  Country: None (occurrence: None)
  Receive Date: 20061101
  Receipt Date: 20061012
  Transmission Date: 20070319
  Serious: Yes (Hospitalization, Other)
  Sender: FDA-Public Use
  Company Number: CH200610002438

PATIENT
  Age: 21 Year
  Sex: Female

DRUGS (3)
  1. FLUOXETINE HCL [Suspect]
     Indication: DRUG USE FOR UNKNOWN INDICATION
  2. ANTABUS (DISULFIRAM) [Concomitant]
  3. SEROQUEL /UNK/ (QUETIAPINE FUMARATE) [Concomitant]

REACTIONS (3)
  - ACNE [None]
  - CONDITION AGGRAVATED [None]
  - NEUTROPHIL COUNT DECREASED [None]
